FAERS Safety Report 23027637 (Version 1)
Quarter: 2023Q4

REPORT INFORMATION
  Report Type: Spontaneous
  Country: CA (occurrence: CA)
  Receive Date: 20231004
  Receipt Date: 20231004
  Transmission Date: 20240109
  Serious: Yes (Other)
  Sender: FDA-Public Use
  Company Number: CA-BAYER-2023A136211

PATIENT
  Age: 35 Year
  Sex: Female
  Weight: 126.98 kg

DRUGS (1)
  1. GADOBUTROL [Suspect]
     Active Substance: GADOBUTROL
     Indication: Liver scan
     Dosage: 1 DF, ONCE
     Route: 042

REACTIONS (2)
  - Hypoaesthesia [Unknown]
  - Pruritus [Unknown]
